FAERS Safety Report 24782103 (Version 1)
Quarter: 2024Q4

REPORT INFORMATION
  Report Type: Spontaneous
  Country: US (occurrence: US)
  Receive Date: 20241227
  Receipt Date: 20241227
  Transmission Date: 20250115
  Serious: Yes (Other)
  Sender: DR REDDYS
  Company Number: US-DRL-USA-SPO/USA/24/0019142

PATIENT
  Age: 15 Year
  Sex: Female

DRUGS (2)
  1. ACCUTANE [Suspect]
     Active Substance: ISOTRETINOIN
     Indication: Acne
     Dosage: ACCUTANE ISOTRETINOIN 30MG CAPSULE
     Route: 065
  2. ACCUTANE [Suspect]
     Active Substance: ISOTRETINOIN
     Dosage: ACCUTANE ISOTRETINOIN 20 MG CAPSULE
     Route: 065

REACTIONS (1)
  - Seizure [Unknown]
